FAERS Safety Report 11334484 (Version 4)
Quarter: 2016Q3

REPORT INFORMATION
  Report Type: Report from Study
  Country: US (occurrence: US)
  Receive Date: 20150804
  Receipt Date: 20160819
  Transmission Date: 20161109
  Serious: Yes (Hospitalization)
  Sender: FDA-Public Use
  Company Number: US-ACTELION-A-NJ2015-121784

PATIENT
  Age: 82 Year
  Sex: Female

DRUGS (4)
  1. ADCIRCA [Concomitant]
     Active Substance: TADALAFIL
  2. XARELTO [Concomitant]
     Active Substance: RIVAROXABAN
  3. OPSUMIT [Suspect]
     Active Substance: MACITENTAN
     Indication: PULMONARY ARTERIAL HYPERTENSION
     Dosage: 10 MG, QD
     Route: 048
     Dates: start: 20140825
  4. TYVASO [Concomitant]
     Active Substance: TREPROSTINIL

REACTIONS (23)
  - Fluid retention [Unknown]
  - Hypotension [Recovered/Resolved]
  - Peripheral swelling [Unknown]
  - Anaemia [Recovered/Resolved]
  - Pulmonary embolism [Recovered/Resolved]
  - Hypoxia [Recovered/Resolved]
  - Transfusion [Recovered/Resolved]
  - Shoulder operation [Unknown]
  - Atrial fibrillation [Unknown]
  - Bronchitis [Recovered/Resolved]
  - Fall [Unknown]
  - Humerus fracture [Recovered/Resolved]
  - Abdominal hernia [Unknown]
  - Shoulder arthroplasty [Unknown]
  - Epistaxis [Recovered/Resolved]
  - Cardioversion [Recovered/Resolved]
  - Acute respiratory failure [Recovered/Resolved]
  - Aspartate aminotransferase increased [Recovered/Resolved]
  - Gastrointestinal haemorrhage [Unknown]
  - Swelling [Unknown]
  - Dyspnoea [Recovered/Resolved]
  - Cough [Recovered/Resolved]
  - Dyspnoea [Recovered/Resolved]

NARRATIVE: CASE EVENT DATE: 201501
